FAERS Safety Report 5787456-7 (Version None)
Quarter: 2008Q2

REPORT INFORMATION
  Report Type: 
  Country: None (occurrence: None)
  Receive Date: 20080623
  Receipt Date: 20080623
  Transmission Date: 20081010
  Serious: Yes (Hospitalization)
  Sender: FDA-Public Use
  Company Number: None

PATIENT
  Sex: Female
  Weight: 63.8 kg

DRUGS (6)
  1. IRINOTECAN HCL [Suspect]
     Dosage: 170 MG
  2. MESNA [Suspect]
     Dosage: 1230 MG
  3. VINCRISTINE SULFATE [Suspect]
     Dosage: 18 MG
  4. CYCLOPHOSPHAMIDE [Suspect]
     Dosage: 2040 MG
  5. DACTINOMYCIN [Suspect]
     Dosage: 2.5 MG
  6. G-CSF (FILGRASTIM, AMGEN) [Suspect]
     Dosage: 6 MG

REACTIONS (8)
  - BURNS SECOND DEGREE [None]
  - INCREASED BRONCHIAL SECRETION [None]
  - ORAL DISORDER [None]
  - ORAL INTAKE REDUCED [None]
  - PHARYNGEAL DISORDER [None]
  - RADIATION SKIN INJURY [None]
  - STOMATITIS [None]
  - THERAPEUTIC AGENT TOXICITY [None]
